FAERS Safety Report 7017559-0 (Version None)
Quarter: 2010Q3

REPORT INFORMATION
  Report Type: 
  Country: None (occurrence: None)
  Receive Date: 20100928
  Receipt Date: 20090915
  Transmission Date: 20110219
  Serious: Yes (Other)
  Sender: FDA-Public Use
  Company Number: US-MYLANLABS-2009S1014050

PATIENT
  Age: 58 Year
  Sex: Male
  Weight: 81.65 kg

DRUGS (4)
  1. FLUOXETINE [Suspect]
     Indication: OBSESSIVE-COMPULSIVE DISORDER
     Route: 048
     Dates: start: 19910101
  2. FLUOXETINE [Suspect]
     Indication: DEPRESSION
     Route: 048
     Dates: start: 19910101
  3. FLUOXETINE [Suspect]
     Route: 048
  4. FLUOXETINE [Suspect]
     Route: 048

REACTIONS (1)
  - MYOCLONIC EPILEPSY [None]
